FAERS Safety Report 7523418-7 (Version None)
Quarter: 2011Q2

REPORT INFORMATION
  Report Type: 
  Country: None (occurrence: None)
  Receive Date: 20110603
  Receipt Date: 20110526
  Transmission Date: 20111010
  Serious: Yes (Hospitalization)
  Sender: FDA-Public Use
  Company Number: B0723739A

PATIENT
  Sex: Female

DRUGS (8)
  1. METOPROLOL TARTRATE [Concomitant]
  2. LIPITOR [Concomitant]
  3. INSULATARD [Concomitant]
  4. VALTREX [Suspect]
     Indication: CYTOMEGALOVIRUS INFECTION
     Route: 065
     Dates: start: 20110216
  5. PROGRAF [Concomitant]
  6. CELLCEPT [Concomitant]
  7. PREDNISOLONE [Concomitant]
  8. NOVORAPID [Concomitant]

REACTIONS (6)
  - AGRANULOCYTOSIS [None]
  - DYSURIA [None]
  - C-REACTIVE PROTEIN INCREASED [None]
  - MYELOID MATURATION ARREST [None]
  - NEUTROPENIA [None]
  - PYREXIA [None]
